FAERS Safety Report 12922184 (Version 1)
Quarter: 2016Q4

REPORT INFORMATION
  Report Type: Spontaneous
  Country: US (occurrence: US)
  Receive Date: 20161108
  Receipt Date: 20161108
  Transmission Date: 20170207
  Serious: Yes (Other)
  Sender: FDA-Public Use
  Company Number: US-THE MENTHOLATUM COMPANY-1059343

PATIENT
  Age: 45 Year
  Sex: Female
  Weight: 59.09 kg

DRUGS (1)
  1. OXY RAPID SPOT TREATMENT MAXIMUM ACTION [Suspect]
     Active Substance: BENZOYL PEROXIDE
     Route: 061
     Dates: start: 20161029, end: 20161030

REACTIONS (1)
  - Hypersensitivity [Recovering/Resolving]

NARRATIVE: CASE EVENT DATE: 20161030
